FAERS Safety Report 18969398 (Version 2)
Quarter: 2021Q1

REPORT INFORMATION
  Report Type: Spontaneous
  Country: US (occurrence: US)
  Receive Date: 20210304
  Receipt Date: 20210311
  Transmission Date: 20210420
  Serious: Yes (Other)
  Sender: FDA-Public Use
  Company Number: US-ACCORD-218488

PATIENT
  Age: 33 Year
  Sex: Female

DRUGS (4)
  1. BEVACIZUMAB. [Concomitant]
     Active Substance: BEVACIZUMAB
     Indication: CHEMOTHERAPY
     Dosage: 21?DAY CYCLE
     Route: 042
  2. LEVONORGESTREL. [Concomitant]
     Active Substance: LEVONORGESTREL
     Indication: ENDOMETRIAL ADENOCARCINOMA
     Dosage: LEVONORGESTREL?RELEASING INTRAUTERINE DEVICE
     Route: 015
  3. PACLITAXEL. [Concomitant]
     Active Substance: PACLITAXEL
     Indication: CHEMOTHERAPY
     Dosage: 21?DAY CYCLE
     Route: 042
  4. CISPLATIN. [Suspect]
     Active Substance: CISPLATIN
     Indication: CHEMOTHERAPY
     Dosage: 21?DAY CYCLE
     Route: 042

REACTIONS (1)
  - Toxicity to various agents [Recovered/Resolved]
